FAERS Safety Report 8523867-4 (Version None)
Quarter: 2012Q3

REPORT INFORMATION
  Report Type: 
  Country: None (occurrence: None)
  Receive Date: 20120720
  Receipt Date: 20120711
  Transmission Date: 20120928
  Serious: Yes (Hospitalization)
  Sender: FDA-Public Use
  Company Number: JP-NOVOPROD-292142

PATIENT
  Age: 14 Year
  Sex: Male
  Weight: 30 kg

DRUGS (4)
  1. LACTOMIN [Concomitant]
     Indication: DIARRHOEA
     Dosage: 3 G, QD
     Route: 048
     Dates: start: 20090420, end: 20090427
  2. NORDITROPIN NORDIFLEX [Suspect]
     Indication: BODY HEIGHT BELOW NORMAL
     Dosage: 5.6-5.85MG/WEEK
     Route: 058
     Dates: start: 20081006, end: 20090427
  3. NORDITROPIN NORDIFLEX [Suspect]
     Dosage: 0.19 MG/KG
     Dates: start: 20090316, end: 20090427
  4. NORDITROPIN NORDIFLEX [Suspect]
     Indication: GROWTH HORMONE DEFICIENCY
     Dosage: 0.187 MG/KG
     Dates: start: 20081209, end: 20090316

REACTIONS (2)
  - URINARY TRACT INFECTION [None]
  - TYPE 1 DIABETES MELLITUS [None]
